FAERS Safety Report 24574611 (Version 1)
Quarter: 2024Q4

REPORT INFORMATION
  Report Type: Spontaneous
  Country: US (occurrence: US)
  Receive Date: 20241104
  Receipt Date: 20241104
  Transmission Date: 20250115
  Serious: No
  Sender: AMGEN
  Company Number: US-AMGEN-USASP2024216156

PATIENT

DRUGS (2)
  1. OTEZLA [Suspect]
     Active Substance: APREMILAST
     Indication: Psoriasis
     Dosage: UNK
     Route: 065
  2. BERBERINE COMPLEX [Concomitant]
     Indication: Psoriasis
     Dosage: UNK

REACTIONS (2)
  - Drug ineffective [Unknown]
  - Anaemia [Unknown]
